FAERS Safety Report 14388577 (Version 1)
Quarter: 2018Q1

REPORT INFORMATION
  Report Type: Spontaneous
  Country: US (occurrence: US)
  Receive Date: 20180115
  Receipt Date: 20180115
  Transmission Date: 20180509
  Serious: No
  Sender: FDA-Public Use
  Company Number: US-AMNEAL PHARMACEUTICALS-2017AMN00985

PATIENT
  Age: 75 Year
  Sex: Male
  Weight: 88.44 kg

DRUGS (2)
  1. BLOOD PRESSURE MEDICATION (UNKNOWN) [Concomitant]
     Indication: HYPERTENSION
     Dosage: UNK UNK, ONCE
     Route: 065
  2. DICLOFENAC SODIUM. [Suspect]
     Active Substance: DICLOFENAC SODIUM
     Indication: PAIN
     Dosage: UNK UNK, ONCE
     Route: 061
     Dates: start: 20171020, end: 20171020

REACTIONS (1)
  - Abdominal pain upper [Recovered/Resolved]

NARRATIVE: CASE EVENT DATE: 20171020
